FAERS Safety Report 9747967 (Version 1)
Quarter: 2013Q4

REPORT INFORMATION
  Report Type: Spontaneous
  Country: US (occurrence: None)
  Receive Date: 20131211
  Receipt Date: 20131211
  Transmission Date: 20140711
  Serious: Yes (Other)
  Sender: FDA-Public Use
  Company Number: None

PATIENT
  Sex: 0

DRUGS (1)
  1. PREDNISOLONE ACETATE [Suspect]
     Indication: PROPHYLAXIS AGAINST TRANSPLANT REJECTION
     Dosage: 1% ?4 DROPS A DAY IN EYE?4 TIMES DAILY?DROPS IN EYE FOR CORNEA REJECTION
     Dates: start: 20090215

REACTIONS (4)
  - Cough [None]
  - Erythema [None]
  - Haemoptysis [None]
  - Sputum discoloured [None]
